FAERS Safety Report 8914848 (Version 2)
Quarter: 2012Q4

REPORT INFORMATION
  Report Type: 
  Country: US (occurrence: US)
  Receive Date: 20121116
  Receipt Date: 20121129
  Transmission Date: 20130627
  Serious: Yes (Hospitalization, Other)
  Sender: FDA-Public Use
  Company Number: US-ASTRAZENECA-2012SE85195

PATIENT
  Age: 50 Year
  Sex: Female

DRUGS (2)
  1. SYMBICORT PMDI [Suspect]
     Dosage: UNKNOWN STRENGTH AND FREQUENCY
     Route: 055
  2. SPIRIVA [Concomitant]

REACTIONS (8)
  - Chronic obstructive pulmonary disease [Unknown]
  - PO2 decreased [Unknown]
  - Cardiac disorder [Unknown]
  - Fibromyalgia [Unknown]
  - Intervertebral disc injury [Unknown]
  - Dyspnoea [Unknown]
  - Panic attack [Unknown]
  - Intentional drug misuse [Unknown]
